FAERS Safety Report 13440645 (Version 1)
Quarter: 2017Q2

REPORT INFORMATION
  Report Type: Spontaneous
  Country: US (occurrence: US)
  Receive Date: 20170413
  Receipt Date: 20170413
  Transmission Date: 20170830
  Serious: No
  Sender: FDA-Public Use
  Company Number: US-ASTELLAS-2017US004204

PATIENT
  Sex: Female

DRUGS (2)
  1. PROGRAF [Suspect]
     Active Substance: TACROLIMUS\TACROLIMUS ANHYDROUS
     Dosage: 1 MG (ONE TABLET IN MORNING AND ONE IN AFTERNOON), TWICE DAILY
     Route: 048
  2. PROGRAF [Suspect]
     Active Substance: TACROLIMUS\TACROLIMUS ANHYDROUS
     Indication: RENAL TRANSPLANT
     Dosage: 2 MG (02 1 MG TABTES IN MORNING AND 02 IN AFTERNOON), TWICE DAILY
     Route: 048

REACTIONS (1)
  - Treatment noncompliance [Unknown]
